FAERS Safety Report 9354372 (Version 2)
Quarter: 2013Q3

REPORT INFORMATION
  Report Type: Spontaneous
  Country: BR (occurrence: BR)
  Receive Date: 20130618
  Receipt Date: 20130816
  Transmission Date: 20140515
  Serious: Yes (Death, Hospitalization)
  Sender: FDA-Public Use
  Company Number: BR-ASTRAZENECA-2013SE42247

PATIENT
  Age: 27237 Day
  Sex: Male
  Weight: 72 kg

DRUGS (7)
  1. SELOZOK [Suspect]
     Route: 048
     Dates: start: 2003
  2. BRILINTA [Suspect]
     Route: 048
     Dates: start: 201306
  3. LOSARTAN [Concomitant]
     Dates: start: 2003
  4. PURAN T4 [Concomitant]
     Dates: start: 2003
  5. SUSTRATE [Concomitant]
     Dates: start: 2003
  6. ASPIRINA PREVENT [Concomitant]
     Dates: start: 2003
  7. ANCORON [Concomitant]
     Dates: start: 2003

REACTIONS (1)
  - Coronary artery occlusion [Fatal]
